FAERS Safety Report 5866228-9 (Version None)
Quarter: 2008Q3

REPORT INFORMATION
  Report Type: 
  Country: None (occurrence: None)
  Receive Date: 20080829
  Receipt Date: 20080818
  Transmission Date: 20090109
  Serious: Yes (Other)
  Sender: FDA-Public Use
  Company Number: US-PFIZER INC-2008069927

PATIENT
  Sex: Male
  Weight: 117.9 kg

DRUGS (2)
  1. CHANTIX [Suspect]
     Indication: SMOKING CESSATION THERAPY
     Dates: start: 20080321, end: 20080815
  2. ANTIHYPERTENSIVES [Concomitant]

REACTIONS (2)
  - HEART RATE IRREGULAR [None]
  - INCORRECT DRUG ADMINISTRATION DURATION [None]
